FAERS Safety Report 6081006-6 (Version None)
Quarter: 2009Q1

REPORT INFORMATION
  Report Type: 
  Country: None (occurrence: None)
  Receive Date: 20090217
  Receipt Date: 20090216
  Transmission Date: 20090719
  Serious: Yes (Other)
  Sender: FDA-Public Use
  Company Number: US-B.I. PHARMACEUTICALS,INC./RIDGEFIELD-2009-DE-01595GD

PATIENT
  Sex: Male

DRUGS (3)
  1. NEVIRAPINE [Suspect]
     Indication: HIV INFECTION
     Dosage: 400MG
     Route: 048
  2. TENOFOVIR [Suspect]
     Indication: HIV INFECTION
     Dosage: 300MG
     Route: 048
  3. LAMIVUDINE [Suspect]
     Indication: HIV INFECTION
     Dosage: 300MG
     Route: 048

REACTIONS (2)
  - AIDS RELATED COMPLICATION [None]
  - NEOPLASM MALIGNANT [None]
